FAERS Safety Report 8916924 (Version 1)
Quarter: 2012Q4

REPORT INFORMATION
  Report Type: 
  Country: US (occurrence: US)
  Receive Date: 20121120
  Receipt Date: 20121120
  Transmission Date: 20130627
  Serious: No
  Sender: FDA-Public Use
  Company Number: US-009507513-1211USA007229

PATIENT
  Age: 8 Year
  Sex: Male

DRUGS (2)
  1. JANUVIA [Suspect]
     Indication: DIABETES MELLITUS
     Dosage: 50 mg, UNK
     Route: 048
     Dates: end: 2012
  2. METFORMIN [Concomitant]

REACTIONS (1)
  - Rhinorrhoea [Recovered/Resolved]
